FAERS Safety Report 8779498 (Version 4)
Quarter: 2014Q2

REPORT INFORMATION
  Report Type: Report from Study
  Country: US (occurrence: US)
  Receive Date: 20120912
  Receipt Date: 20140401
  Transmission Date: 20141212
  Serious: Yes (Hospitalization)
  Sender: FDA-Public Use
  Company Number: US-ROCHE-1109921

PATIENT
  Age: 69 Year
  Sex: Female
  Weight: 87.62 kg

DRUGS (12)
  1. TRASTUZUMAB [Suspect]
     Indication: BREAST CANCER
     Dosage: LOADING DOSE
     Route: 042
     Dates: start: 20090513
  2. TRASTUZUMAB [Suspect]
     Dosage: DATE OF LAST DOSE PRIOR TO SAE : 08/AUG/2012, MAINTAINACE DOSE
     Route: 042
  3. LANTUS [Concomitant]
     Route: 065
  4. OMEPRAZOLE [Concomitant]
     Route: 065
  5. ATORVASTAN [Concomitant]
     Route: 065
  6. JANUVIA [Concomitant]
     Route: 065
  7. ACTOS [Concomitant]
     Route: 065
  8. PAROXETINE [Concomitant]
     Route: 065
  9. ASPIRIN [Concomitant]
     Route: 065
  10. FUROSEMIDE [Concomitant]
     Route: 065
  11. PERTUZUMAB [Suspect]
     Indication: BREAST CANCER
     Dosage: LOADING DOSE
     Route: 042
     Dates: start: 20090512
  12. PERTUZUMAB [Suspect]
     Dosage: MAINTAINANCE DOSE, DATE OF LAST DOSE PRIOR TO SAE : 08/AUG/2012
     Route: 042

REACTIONS (3)
  - Coronary artery disease [Recovering/Resolving]
  - Aortic stenosis [Recovering/Resolving]
  - Cardiac failure congestive [Recovered/Resolved]
